FAERS Safety Report 25523451 (Version 2)
Quarter: 2025Q3

REPORT INFORMATION
  Report Type: Report from Study
  Country: CA (occurrence: CA)
  Receive Date: 20250707
  Receipt Date: 20250813
  Transmission Date: 20251021
  Serious: Yes (Hospitalization, Other)
  Sender: ABBVIE
  Company Number: CA-ABBVIE-6356631

PATIENT
  Age: 67 Year
  Sex: Female

DRUGS (1)
  1. SKYRIZI [Suspect]
     Active Substance: RISANKIZUMAB-RZAA
     Indication: Crohn^s disease
     Route: 058

REACTIONS (4)
  - Abdominal operation [Unknown]
  - Intestinal obstruction [Not Recovered/Not Resolved]
  - Post procedural infection [Unknown]
  - Incision site discharge [Unknown]

NARRATIVE: CASE EVENT DATE: 20250101
